FAERS Safety Report 19459502 (Version 1)
Quarter: 2021Q2

REPORT INFORMATION
  Report Type: Spontaneous
  Country: CA (occurrence: CA)
  Receive Date: 20210624
  Receipt Date: 20210624
  Transmission Date: 20210717
  Serious: Yes (Hospitalization, Other)
  Sender: FDA-Public Use
  Company Number: CA-TEVA-2021-CA-1924542

PATIENT
  Age: 39 Year
  Sex: Male

DRUGS (6)
  1. TOFACITINIB [Suspect]
     Active Substance: TOFACITINIB
     Dosage: 30 MILLIGRAM DAILY;
     Route: 065
     Dates: start: 202008
  2. METHYLPREDNISONE [Suspect]
     Active Substance: METHYLPREDNISOLONE
     Indication: COLITIS ULCERATIVE
     Dosage: 60 MILLIGRAM DAILY;
     Route: 042
     Dates: start: 202008
  3. PREDNISONE. [Suspect]
     Active Substance: PREDNISONE
     Indication: COLITIS ULCERATIVE
     Route: 065
     Dates: start: 2009, end: 2020
  4. TOFACITINIB [Suspect]
     Active Substance: TOFACITINIB
     Indication: COLITIS ULCERATIVE
     Dosage: 20 MILLIGRAM DAILY;
     Route: 065
     Dates: start: 202008
  5. INFLIXIMAB [Concomitant]
     Active Substance: INFLIXIMAB
     Route: 065
     Dates: end: 202008
  6. INFLIXIMAB [Concomitant]
     Active Substance: INFLIXIMAB
     Indication: COLITIS ULCERATIVE
     Dosage: LATER, DOSE?ESCALATED TO EVERY 4 WEEKS
     Route: 065
     Dates: start: 201912

REACTIONS (3)
  - Off label use [Unknown]
  - Steroid dependence [Unknown]
  - Drug ineffective [Unknown]

NARRATIVE: CASE EVENT DATE: 202008
